FAERS Safety Report 9785733 (Version 2)
Quarter: 2013Q4

REPORT INFORMATION
  Report Type: Spontaneous
  Country: US (occurrence: US)
  Receive Date: 20131227
  Receipt Date: 20131227
  Transmission Date: 20140711
  Serious: Yes (Hospitalization, Other)
  Sender: FDA-Public Use
  Company Number: US-009507513-0801USA03742

PATIENT
  Sex: Female
  Weight: 72.58 kg

DRUGS (5)
  1. FOSAMAX [Suspect]
     Indication: OSTEOPOROSIS
     Dosage: 70 MG, QW
     Route: 048
     Dates: start: 200004
  2. VERAPAMIL [Concomitant]
     Dates: start: 20031012
  3. THERAPY UNSPECIFIED [Concomitant]
     Indication: HYPERCHOLESTEROLAEMIA
     Dates: start: 2003
  4. THERAPY UNSPECIFIED [Concomitant]
     Indication: HYPERTENSION
     Dates: start: 1996
  5. CRESTOR [Concomitant]
     Indication: HYPERCHOLESTEROLAEMIA
     Dosage: 10-20 MG QD
     Route: 048

REACTIONS (37)
  - Spinal laminectomy [Unknown]
  - Intervertebral disc operation [Unknown]
  - Intervertebral disc operation [Unknown]
  - Gastrointestinal disorder [Unknown]
  - Hypoacusis [Unknown]
  - Osteonecrosis of jaw [Recovered/Resolved]
  - Osteomyelitis chronic [Recovered/Resolved]
  - Jaw disorder [Unknown]
  - Depression [Unknown]
  - Stomatitis [Unknown]
  - Impaired healing [Unknown]
  - Fistula [Unknown]
  - Oral disorder [Unknown]
  - Gingival pain [Unknown]
  - Toothache [Unknown]
  - Myofascial pain syndrome [Unknown]
  - Cervical radiculopathy [Unknown]
  - Anxiety [Not Recovered/Not Resolved]
  - Sinusitis [Unknown]
  - Haematuria [Unknown]
  - Polyp [Unknown]
  - Polypectomy [Unknown]
  - Joint instability [Unknown]
  - Upper respiratory tract infection [Unknown]
  - Type 2 diabetes mellitus [Unknown]
  - Bursitis [Unknown]
  - Reflux gastritis [Unknown]
  - Intervertebral discitis [Unknown]
  - Bone fragmentation [Unknown]
  - Arthritis [Unknown]
  - Osteopenia [Unknown]
  - Gingivitis [Unknown]
  - Muscle spasms [Unknown]
  - Pain in extremity [Unknown]
  - Nausea [Not Recovered/Not Resolved]
  - Headache [Unknown]
  - Arthralgia [Unknown]
